FAERS Safety Report 14841635 (Version 1)
Quarter: 2018Q2

REPORT INFORMATION
  Report Type: Report from Study
  Country: None (occurrence: IN)
  Receive Date: 20180503
  Receipt Date: 20180503
  Transmission Date: 20180711
  Serious: Yes (Other)
  Sender: FDA-Public Use
  Company Number: IN-BAUSCH-BL-2018-013088

PATIENT

DRUGS (1)
  1. PENICILLAMINE [Suspect]
     Active Substance: PENICILLAMINE
     Indication: HEPATO-LENTICULAR DEGENERATION
     Route: 065

REACTIONS (1)
  - Cytopenia [Unknown]
